FAERS Safety Report 9466022 (Version 1)
Quarter: 2013Q3

REPORT INFORMATION
  Report Type: Spontaneous
  Country: US (occurrence: None)
  Receive Date: 20130816
  Receipt Date: 20130816
  Transmission Date: 20140515
  Serious: Yes (Death)
  Sender: FDA-Public Use
  Company Number: None

PATIENT
  Age: 61 Year
  Sex: Male

DRUGS (1)
  1. REVLIMID [Suspect]
     Indication: PLASMA CELL MYELOMA
     Dosage: 15MG DAILY X21/28D BY MOUTH
     Route: 048
     Dates: start: 201305, end: 201307

REACTIONS (6)
  - Swollen tongue [None]
  - Pancytopenia [None]
  - Malnutrition [None]
  - Pancytopenia [None]
  - Decubitus ulcer [None]
  - Tongue injury [None]
